FAERS Safety Report 14641519 (Version 1)
Quarter: 2018Q1

REPORT INFORMATION
  Report Type: Spontaneous
  Country: RU (occurrence: RU)
  Receive Date: 20180315
  Receipt Date: 20180315
  Transmission Date: 20180509
  Serious: Yes (Hospitalization)
  Sender: FDA-Public Use
  Company Number: RU-ASTRAZENECA-2018SE31040

PATIENT
  Age: 70 Year
  Sex: Female
  Weight: 48 kg

DRUGS (9)
  1. TORVACARD [Concomitant]
     Active Substance: ATORVASTATIN CALCIUM
  2. OMEPRAZOLE. [Concomitant]
     Active Substance: OMEPRAZOLE
  3. THROMBO ASS [Concomitant]
     Active Substance: ASPIRIN
  4. BISOPROLOL [Concomitant]
     Active Substance: BISOPROLOL
  5. FISH OIL [Concomitant]
     Active Substance: FISH OIL
  6. BRILINTA [Suspect]
     Active Substance: TICAGRELOR
     Indication: MYOCARDIAL INFARCTION
     Route: 048
     Dates: start: 201611, end: 201802
  7. PRESTARIUM [Concomitant]
     Active Substance: PERINDOPRIL
  8. NOVONORM [Concomitant]
     Active Substance: REPAGLINIDE
  9. CHOLINE ALFOSCERATE [Concomitant]
     Active Substance: CHOLINE ALFOSCERATE

REACTIONS (9)
  - Blood glucose decreased [Recovered/Resolved]
  - Product use issue [Unknown]
  - Epistaxis [Unknown]
  - Cough [Recovered/Resolved]
  - Nausea [Recovered/Resolved]
  - Sneezing [Recovered/Resolved]
  - Off label use [Unknown]
  - Intentional product misuse [Unknown]
  - Decreased appetite [Not Recovered/Not Resolved]

NARRATIVE: CASE EVENT DATE: 201802
